FAERS Safety Report 5224465-0 (Version None)
Quarter: 2007Q1

REPORT INFORMATION
  Report Type: 
  Country: None (occurrence: None)
  Receive Date: 20070130
  Receipt Date: 20070123
  Transmission Date: 20070707
  Serious: Yes (Other)
  Sender: FDA-Public Use
  Company Number: CA-MERCK-0701CAN00032

PATIENT
  Age: 5 Year
  Sex: Male
  Weight: 20 kg

DRUGS (3)
  1. SINGULAIR [Suspect]
     Indication: ASTHMA
     Route: 048
     Dates: start: 20061030
  2. ALBUTEROL [Concomitant]
     Indication: ASTHMA
     Route: 065
     Dates: start: 20051108
  3. BETAMETHASONE [Concomitant]
     Indication: ECZEMA
     Route: 065
     Dates: start: 20060511

REACTIONS (4)
  - ASTHMA [None]
  - COUGH [None]
  - FEBRILE CONVULSION [None]
  - VIRAL INFECTION [None]
